FAERS Safety Report 9860584 (Version 2)
Quarter: 2014Q1

REPORT INFORMATION
  Report Type: Spontaneous
  Country: SE (occurrence: SE)
  Receive Date: 20140202
  Receipt Date: 20140202
  Transmission Date: 20141002
  Serious: No
  Sender: FDA-Public Use
  Company Number: SE-ALLERGAN-1207994US

PATIENT
  Age: 69 Year
  Sex: Female

DRUGS (2)
  1. BOTOX 200 ALLERGAN [Suspect]
     Indication: NEUROGENIC BLADDER
     Dosage: 100 UNITS, SINGLE
     Route: 030
     Dates: start: 20111228, end: 20111228
  2. BOTOX 200 ALLERGAN [Suspect]
     Indication: HYPERTONIC BLADDER

REACTIONS (1)
  - Back pain [Not Recovered/Not Resolved]
